FAERS Safety Report 8979945 (Version 5)
Quarter: 2014Q2

REPORT INFORMATION
  Report Type: Spontaneous
  Country: US (occurrence: US)
  Receive Date: 20121221
  Receipt Date: 20140417
  Transmission Date: 20141212
  Serious: Yes (Hospitalization, Other)
  Sender: FDA-Public Use
  Company Number: US-009507513-1212USA007835

PATIENT
  Sex: Female

DRUGS (2)
  1. FOSAMAX [Suspect]
     Indication: OSTEOPOROSIS PROPHYLAXIS
     Dosage: 70 MG, QW
     Route: 048
     Dates: start: 200203
  2. ALENDRONATE SODIUM [Suspect]
     Indication: OSTEOPOROSIS PROPHYLAXIS
     Dosage: 70 MG, UNK
     Route: 048
     Dates: start: 2008, end: 20101115

REACTIONS (30)
  - Femur fracture [Recovering/Resolving]
  - Intramedullary rod insertion [Unknown]
  - Intramedullary rod insertion [Unknown]
  - Hypersensitivity [Unknown]
  - Wrist fracture [Unknown]
  - Surgery [Unknown]
  - Osteonecrosis [Unknown]
  - Femur fracture [Unknown]
  - Blood cholesterol increased [Unknown]
  - Disease prodromal stage [Unknown]
  - Spinal osteoarthritis [Unknown]
  - Osteoarthritis [Unknown]
  - Rheumatoid arthritis [Unknown]
  - Cataract operation [Unknown]
  - Insomnia [Unknown]
  - Haematocrit abnormal [Unknown]
  - Myositis ossificans [Unknown]
  - Uterine polyp [Unknown]
  - Orbital pseudotumour [Unknown]
  - Pain in extremity [Unknown]
  - Eye disorder [Unknown]
  - Myositis [Unknown]
  - Osteoarthritis [Unknown]
  - Goitre [Unknown]
  - Urinary tract infection [Unknown]
  - Haematuria [Unknown]
  - Adverse drug reaction [Unknown]
  - Constipation [Unknown]
  - Nausea [Unknown]
  - Diarrhoea [Unknown]
